FAERS Safety Report 7620526-7 (Version None)
Quarter: 2011Q3

REPORT INFORMATION
  Report Type: 
  Country: None (occurrence: None)
  Receive Date: 20110719
  Receipt Date: 20110712
  Transmission Date: 20111222
  Serious: Yes (Hospitalization)
  Sender: FDA-Public Use
  Company Number: US-UCBSA-031243

PATIENT
  Sex: Female
  Weight: 73.93 kg

DRUGS (17)
  1. POLYETHYLENE GLYCOL [Concomitant]
  2. BISACODYL SUPPOSITORY [Concomitant]
  3. ACETAMINOPHEN W/ CODEINE [Concomitant]
  4. PREDNISONE [Concomitant]
     Indication: CROHN'S DISEASE
     Dates: start: 20050101, end: 20050601
  5. MAGNESIUM [Concomitant]
  6. BARIUM SULFATE [Concomitant]
  7. PREDNISONE [Concomitant]
     Dates: start: 20100501
  8. CIMZIA [Suspect]
     Indication: CROHN'S DISEASE
     Route: 058
     Dates: start: 20101123
  9. MIRALAX [Concomitant]
  10. DEXTROSE-NACL INFUSION [Concomitant]
  11. TYLENOL-500 [Concomitant]
     Dosage: DAILY AS NEEDED
  12. ADALIMUMAB [Concomitant]
  13. ONDANSETRON [Concomitant]
  14. VITAMIN AND MINERAL PRENATAL SUPPLEMENT W/ FOLIC ACID CAP [Concomitant]
  15. BUDESONIDE [Concomitant]
  16. DIPHENHYDRAMINE HCL [Concomitant]
  17. HYDROMORPHONE HCL [Concomitant]

REACTIONS (1)
  - ILEOCOLECTOMY [None]
